FAERS Safety Report 13530888 (Version 1)
Quarter: 2017Q2

REPORT INFORMATION
  Report Type: Spontaneous
  Country: US (occurrence: US)
  Receive Date: 20170510
  Receipt Date: 20170510
  Transmission Date: 20170830
  Serious: Yes (Other)
  Sender: FDA-Public Use
  Company Number: US-BRISTOL-MYERS SQUIBB COMPANY-BMS-2017-038966

PATIENT
  Age: 46 Year
  Sex: Female
  Weight: 113.3 kg

DRUGS (2)
  1. ELIQUIS [Suspect]
     Active Substance: APIXABAN
     Indication: CEREBROVASCULAR ACCIDENT PROPHYLAXIS
     Dosage: 5 MG, BID
     Route: 048
  2. METOPROLOL. [Concomitant]
     Active Substance: METOPROLOL
     Indication: PRODUCT USED FOR UNKNOWN INDICATION
     Dosage: 25 MG, QD
     Route: 065

REACTIONS (6)
  - Hyperaesthesia [Unknown]
  - Nausea [Unknown]
  - Hernia repair [Unknown]
  - Vomiting [Unknown]
  - Rash [Unknown]
  - Anxiety [Unknown]

NARRATIVE: CASE EVENT DATE: 20170417
